FAERS Safety Report 4738491-9 (Version None)
Quarter: 2005Q3

REPORT INFORMATION
  Report Type: 
  Country: None (occurrence: None)
  Receive Date: 20050809
  Receipt Date: 20050729
  Transmission Date: 20060218
  Serious: Yes (Hospitalization, Other)
  Sender: FDA-Public Use
  Company Number: JP-JNJFOC-20041200339

PATIENT
  Sex: Male

DRUGS (5)
  1. ITRIZOLE [Suspect]
     Indication: ONYCHOMYCOSIS
     Route: 048
     Dates: start: 20040204, end: 20041113
  2. ITRIZOLE [Suspect]
     Indication: TINEA PEDIS
     Route: 048
     Dates: start: 20040204, end: 20041113
  3. DIGOXIN [Concomitant]
     Indication: ATRIAL FIBRILLATION
     Route: 048
     Dates: start: 20030101, end: 20040401
  4. ASPIRIN [Concomitant]
     Indication: ATRIAL FIBRILLATION
     Route: 048
  5. BIFONAZOLE [Concomitant]
     Indication: TINEA PEDIS
     Route: 061

REACTIONS (10)
  - ANAEMIA [None]
  - CARDIAC FAILURE [None]
  - DIABETES MELLITUS [None]
  - DRUG EFFECT DECREASED [None]
  - NEPHRITIS AUTOIMMUNE [None]
  - PALPITATIONS [None]
  - PLEURAL EFFUSION [None]
  - SPUTUM DISCOLOURED [None]
  - TACHYCARDIA [None]
  - VASCULITIS [None]
